FAERS Safety Report 9707597 (Version 1)
Quarter: 2013Q4

REPORT INFORMATION
  Report Type: Spontaneous
  Country: US (occurrence: US)
  Receive Date: 20131125
  Receipt Date: 20131125
  Transmission Date: 20140711
  Serious: No
  Sender: FDA-Public Use
  Company Number: US-TEVA-377185USA

PATIENT
  Age: 28 Year
  Sex: Female
  Weight: 68.1 kg

DRUGS (3)
  1. PARAGARD 380A [Suspect]
     Indication: CONTRACEPTION
     Route: 015
     Dates: start: 201207, end: 20121219
  2. ZOLOFT [Concomitant]
     Indication: DEPRESSION
     Dates: start: 2002
  3. AMPHETAMINE [Concomitant]
     Indication: ATTENTION DEFICIT/HYPERACTIVITY DISORDER
     Dates: start: 2002

REACTIONS (3)
  - Abdominal pain [Not Recovered/Not Resolved]
  - Pregnancy [Unknown]
  - Device dislocation [Recovered/Resolved]
